FAERS Safety Report 5763026-1 (Version None)
Quarter: 2008Q2

REPORT INFORMATION
  Report Type: 
  Country: None (occurrence: None)
  Receive Date: 20080609
  Receipt Date: 20080527
  Transmission Date: 20081010
  Serious: Yes (Other)
  Sender: FDA-Public Use
  Company Number: US-ELI_LILLY_AND_COMPANY-US200801004908

PATIENT
  Sex: Female
  Weight: 44.2 kg

DRUGS (4)
  1. HUMATROPE [Suspect]
     Indication: LAURENCE-MOON-BARDET-BIEDL SYNDROME
     Dosage: 1.6 MG, DAILY (1/D)
     Route: 058
     Dates: start: 20060828, end: 20080101
  2. FLUOXETINE HCL [Concomitant]
  3. DEXEDRINE [Concomitant]
  4. ABILIFY [Concomitant]

REACTIONS (1)
  - OSTEONECROSIS [None]
